FAERS Safety Report 16951498 (Version 1)
Quarter: 2019Q4

REPORT INFORMATION
  Report Type: Spontaneous
  Country: US (occurrence: US)
  Receive Date: 20191023
  Receipt Date: 20191023
  Transmission Date: 20200122
  Serious: Yes (Hospitalization)
  Sender: FDA-Public Use
  Company Number: US-PFIZER INC-2019457156

PATIENT
  Age: 74 Year
  Sex: Female
  Weight: 60.33 kg

DRUGS (1)
  1. REVATIO [Suspect]
     Active Substance: SILDENAFIL CITRATE
     Indication: PULMONARY HYPERTENSION
     Dosage: 10 MG, 3X/DAY
     Route: 048

REACTIONS (1)
  - Cardiac failure congestive [Not Recovered/Not Resolved]
